FAERS Safety Report 7425981-3 (Version None)
Quarter: 2011Q2

REPORT INFORMATION
  Report Type: 
  Country: None (occurrence: None)
  Receive Date: 20110420
  Receipt Date: 20110412
  Transmission Date: 20111010
  Serious: Yes (Hospitalization, Other)
  Sender: FDA-Public Use
  Company Number: DE-ASTRAZENECA-2011SE09963

PATIENT
  Age: 85 Year
  Sex: Male

DRUGS (3)
  1. ATACAND HCT [Suspect]
     Indication: HYPERTENSION
     Dosage: 8/12.5 MG, 1 DOSAGE FORM, IN THE MORNING.
     Route: 048
     Dates: start: 20110212, end: 20110301
  2. ATACAND [Suspect]
     Indication: HYPERTENSION
     Route: 048
     Dates: start: 20110212
  3. DILATREND [Concomitant]
     Route: 048

REACTIONS (5)
  - HYPERTENSION [None]
  - MALAISE [None]
  - DRUG INEFFECTIVE [None]
  - FATIGUE [None]
  - HEADACHE [None]
